FAERS Safety Report 19094230 (Version 10)
Quarter: 2021Q3

REPORT INFORMATION
  Report Type: Report from Study
  Country: None (occurrence: FR)
  Receive Date: 20210405
  Receipt Date: 20210728
  Transmission Date: 20211014
  Serious: Yes (Hospitalization)
  Sender: FDA-Public Use
  Company Number: FR-ABBVIE-21K-056-3845126-00

PATIENT
  Age: 84 Year
  Sex: Female

DRUGS (2)
  1. DUODOPA [Suspect]
     Active Substance: CARBIDOPA\LEVODOPA
     Route: 050
     Dates: start: 20210506
  2. DUODOPA [Suspect]
     Active Substance: CARBIDOPA\LEVODOPA
     Indication: PARKINSON^S DISEASE
     Route: 050
     Dates: start: 202101, end: 20210408

REACTIONS (20)
  - COVID-19 [Not Recovered/Not Resolved]
  - Fall [Unknown]
  - Intentional medical device removal by patient [Not Recovered/Not Resolved]
  - Unevaluable event [Unknown]
  - Femur fracture [Unknown]
  - Fall [Unknown]
  - Mobility decreased [Unknown]
  - Femur fracture [Unknown]
  - Device dislocation [Unknown]
  - Autonomic nervous system imbalance [Unknown]
  - Disorientation [Not Recovered/Not Resolved]
  - Hypokinesia [Unknown]
  - Fall [Recovered/Resolved]
  - Confusional state [Not Recovered/Not Resolved]
  - Disorientation [Unknown]
  - Anxiety [Unknown]
  - Femur fracture [Recovered/Resolved]
  - Unevaluable event [Unknown]
  - Muscular weakness [Not Recovered/Not Resolved]
  - Disorientation [Unknown]

NARRATIVE: CASE EVENT DATE: 2021
